FAERS Safety Report 8270194-9 (Version None)
Quarter: 2012Q2

REPORT INFORMATION
  Report Type: 
  Country: None (occurrence: None)
  Receive Date: 20120410
  Receipt Date: 20120402
  Transmission Date: 20120825
  Serious: Yes (Other)
  Sender: FDA-Public Use
  Company Number: SG-B.I. PHARMACEUTICALS,INC./RIDGEFIELD-2012-EU-01704GD

PATIENT

DRUGS (1)
  1. DABIGATRAN ETEXILATE [Suspect]

REACTIONS (1)
  - CEREBROVASCULAR ACCIDENT [None]
